FAERS Safety Report 7493782-6 (Version None)
Quarter: 2011Q2

REPORT INFORMATION
  Report Type: 
  Country: None (occurrence: None)
  Receive Date: 20110520
  Receipt Date: 20110318
  Transmission Date: 20111010
  Serious: No
  Sender: FDA-Public Use
  Company Number: US-ASTRAZENECA-2011SE15588

PATIENT
  Sex: Female

DRUGS (4)
  1. BP MEDS [Concomitant]
  2. ALLOPURINOL [Concomitant]
  3. VIMOVO [Suspect]
     Indication: RHEUMATOID ARTHRITIS
     Dosage: 500 - 20 MG TWO TIMES A DAY
     Route: 048
     Dates: start: 20110312, end: 20110317
  4. SIMVASTATIN [Concomitant]

REACTIONS (4)
  - GASTROOESOPHAGEAL REFLUX DISEASE [None]
  - DRUG DOSE OMISSION [None]
  - ABDOMINAL PAIN UPPER [None]
  - HEADACHE [None]
